FAERS Safety Report 24971755 (Version 1)
Quarter: 2025Q1

REPORT INFORMATION
  Report Type: Spontaneous
  Country: CN (occurrence: CN)
  Receive Date: 20250214
  Receipt Date: 20250214
  Transmission Date: 20250409
  Serious: Yes (Other)
  Sender: PFIZER
  Company Number: CN-PFIZER INC-PV202500015535

PATIENT
  Age: 31 Year
  Sex: Female

DRUGS (2)
  1. EPIRUBICIN HYDROCHLORIDE [Suspect]
     Active Substance: EPIRUBICIN HYDROCHLORIDE
     Indication: Neoplasm
     Route: 041
     Dates: start: 20241107, end: 20241128
  2. DOCETAXEL [Suspect]
     Active Substance: DOCETAXEL
     Indication: Neoplasm
     Dosage: 120 MG, 1X/DAY
     Route: 041
     Dates: start: 20241107, end: 20241107

REACTIONS (3)
  - Transaminases increased [Recovering/Resolving]
  - Constipation [Recovering/Resolving]
  - Faeces hard [Recovering/Resolving]

NARRATIVE: CASE EVENT DATE: 20241219
